FAERS Safety Report 19173058 (Version 2)
Quarter: 2021Q2

REPORT INFORMATION
  Report Type: Spontaneous
  Country: US (occurrence: US)
  Receive Date: 20210423
  Receipt Date: 20210427
  Transmission Date: 20210717
  Serious: No
  Sender: FDA-Public Use
  Company Number: NVSC2021US085006

PATIENT
  Sex: Female

DRUGS (1)
  1. CHOLESTYRAMINE FOR ORAL SUSPENSION USP [Suspect]
     Active Substance: CHOLESTYRAMINE
     Indication: GASTROINTESTINAL PAIN
     Dosage: UNK, QD
     Route: 048
     Dates: start: 202101

REACTIONS (2)
  - Product use in unapproved indication [Unknown]
  - Dyspepsia [Unknown]
